FAERS Safety Report 9391807 (Version 1)
Quarter: 2013Q3

REPORT INFORMATION
  Report Type: Spontaneous
  Country: US (occurrence: None)
  Receive Date: 20130705
  Receipt Date: 20130705
  Transmission Date: 20140515
  Serious: Yes (Hospitalization)
  Sender: FDA-Public Use
  Company Number: 2013060177

PATIENT
  Sex: Male

DRUGS (1)
  1. DYMISTA [Suspect]
     Indication: NASAL CONGESTION
     Dosage: IN

REACTIONS (1)
  - Asthma [None]
